FAERS Safety Report 6529644-8 (Version None)
Quarter: 2010Q1

REPORT INFORMATION
  Report Type: 
  Country: None (occurrence: None)
  Receive Date: 20100107
  Receipt Date: 20091228
  Transmission Date: 20100710
  Serious: Yes (Hospitalization, Other)
  Sender: FDA-Public Use
  Company Number: ES-GENENTECH-296475

PATIENT

DRUGS (2)
  1. RITUXIMAB [Suspect]
     Indication: EXTRANODAL MARGINAL ZONE B-CELL LYMPHOMA (MALT TYPE)
     Dosage: 375 MG/M2, UNK
     Route: 042
  2. FLUDARABINE [Suspect]
     Indication: EXTRANODAL MARGINAL ZONE B-CELL LYMPHOMA (MALT TYPE)
     Dosage: UNK
     Route: 050

REACTIONS (6)
  - DIARRHOEA [None]
  - DIVERTICULITIS [None]
  - GAMMA-GLUTAMYLTRANSFERASE [None]
  - GRANULOCYTOPENIA [None]
  - PYREXIA [None]
  - THROMBOCYTOPENIA [None]
